FAERS Safety Report 23999488 (Version 1)
Quarter: 2024Q2

REPORT INFORMATION
  Report Type: Spontaneous
  Country: US (occurrence: None)
  Receive Date: 20240620
  Receipt Date: 20240620
  Transmission Date: 20240716
  Serious: Yes (Hospitalization)
  Sender: FDA-Public Use
  Company Number: None

PATIENT
  Age: 69 Year
  Sex: Female

DRUGS (2)
  1. HUMIRA [Suspect]
     Active Substance: ADALIMUMAB
  2. CELEBREX [Suspect]
     Active Substance: CELECOXIB

REACTIONS (4)
  - Illness [None]
  - Diverticulitis [None]
  - Renal failure [None]
  - Therapy interrupted [None]

NARRATIVE: CASE EVENT DATE: 20220101
